FAERS Safety Report 8507924-4 (Version None)
Quarter: 2012Q3

REPORT INFORMATION
  Report Type: 
  Country: None (occurrence: None)
  Receive Date: 20120713
  Receipt Date: 20120707
  Transmission Date: 20120928
  Serious: Yes (Hospitalization)
  Sender: FDA-Public Use
  Company Number: US-BAYER-2011-049634

PATIENT
  Age: 36 Year
  Sex: Female
  Weight: 112 kg

DRUGS (25)
  1. PLAVIX [Concomitant]
  2. SIMVASTATIN [Concomitant]
     Dosage: UNK
     Dates: start: 20100215
  3. AZITHROMYCIN [Concomitant]
  4. CARISOPRODOL [Concomitant]
     Dosage: 350 MG, UNK
  5. PROPOXYPHENE NAPSYLATE W/PARACETAMOL [Concomitant]
     Dosage: 110-650MG
  6. DROSPIRENONE AND ETHINYL ESTRADIOL [Suspect]
     Indication: ORAL CONTRACEPTION
     Dosage: UNK
     Dates: start: 20080801, end: 20100201
  7. FIORICET [Concomitant]
     Indication: MIGRAINE
     Dosage: UNK
     Dates: start: 20090401
  8. CARVEDILOL [Concomitant]
     Dosage: UNK
     Dates: start: 20100222
  9. HYDROCODONE BITARTRATE AND ACETAMINOPHEN [Concomitant]
     Dosage: 10-500MG
  10. LEVOTHYROXINE SODIUM [Concomitant]
     Indication: HYPOTHYROIDISM
     Dosage: UNK
     Dates: start: 20090929
  11. WELLBUTRIN XL [Concomitant]
     Indication: DEPRESSION
     Dosage: UNK
     Dates: start: 20060201
  12. ALPRAZOLAM [Concomitant]
     Dosage: UNK
     Dates: start: 20040101
  13. LIPITOR [Concomitant]
     Dosage: UNK
     Dates: start: 20100201
  14. CETIRIZINE HYDROCHLORIDE [Concomitant]
     Dosage: 10 MG, UNK
  15. THYROID TAB [Concomitant]
     Dosage: UNK
     Dates: start: 20090624, end: 20091101
  16. BUTALBITAL ACETAMINOPHEN AND CAFFEINE [Concomitant]
  17. YASMIN [Suspect]
     Indication: ORAL CONTRACEPTION
     Dosage: UNK
     Dates: start: 20060701, end: 20080801
  18. LISINOPRIL [Concomitant]
     Indication: HYPERTENSION
     Dosage: UNK
     Dates: start: 20070504
  19. ZETIA [Concomitant]
     Dosage: 10 MG, QD
  20. PHENTERMINE [Concomitant]
     Indication: WEIGHT DECREASED
     Dosage: UNK
     Dates: start: 20100125, end: 20100214
  21. PRILOSEC [Concomitant]
     Dosage: 20 MG, QD
  22. TOPAMAX [Concomitant]
     Indication: MIGRAINE
     Dosage: UNK
     Dates: start: 20090901
  23. FUROSEMIDE [Concomitant]
  24. POTASSIUM CHLORIDE [Concomitant]
  25. NITROGLYCERIN [Concomitant]

REACTIONS (5)
  - EMOTIONAL DISTRESS [None]
  - DEEP VEIN THROMBOSIS [None]
  - ANXIETY [None]
  - MYOCARDIAL INFARCTION [None]
  - PAIN [None]
